FAERS Safety Report 16680196 (Version 2)
Quarter: 2019Q3

REPORT INFORMATION
  Report Type: Spontaneous
  Country: JP (occurrence: JP)
  Receive Date: 20190807
  Receipt Date: 20190918
  Transmission Date: 20191004
  Serious: Yes (Hospitalization)
  Sender: FDA-Public Use
  Company Number: PHJP2019JP010292

PATIENT
  Sex: Female

DRUGS (1)
  1. TEGRETOL [Suspect]
     Active Substance: CARBAMAZEPINE
     Indication: PRODUCT USED FOR UNKNOWN INDICATION
     Dosage: 4000 MG, UNK
     Route: 048

REACTIONS (6)
  - Altered state of consciousness [Recovering/Resolving]
  - Pneumonia aspiration [Unknown]
  - Constipation [Unknown]
  - Toxicity to various agents [Unknown]
  - Overdose [Unknown]
  - Respiratory disorder [Recovering/Resolving]
